FAERS Safety Report 18813255 (Version 2)
Quarter: 2021Q1

REPORT INFORMATION
  Report Type: Spontaneous
  Country: LV (occurrence: LV)
  Receive Date: 20210201
  Receipt Date: 20210323
  Transmission Date: 20210419
  Serious: Yes (Other)
  Sender: FDA-Public Use
  Company Number: LV-AUROBINDO-AUR-APL-2021-003716

PATIENT
  Age: 86 Year
  Sex: Female
  Weight: 80 kg

DRUGS (4)
  1. METAZERO [Concomitant]
     Indication: SECONDARY HYPERTENSION
     Dosage: UNK
     Route: 048
  2. PROINDAP [Suspect]
     Active Substance: INDAPAMIDE
     Indication: SECONDARY HYPERTENSION
     Dosage: UNK
     Route: 048
     Dates: start: 20201209
  3. GLICLADA [Concomitant]
     Active Substance: GLICLAZIDE
     Indication: TYPE 2 DIABETES MELLITUS
     Dosage: TWO TIMES A DAY
     Route: 048
  4. METFORMIN AUROBINDO FILM?COATED TABLETS 500MG [Suspect]
     Active Substance: METFORMIN HYDROCHLORIDE
     Indication: TYPE 2 DIABETES MELLITUS
     Dosage: ONCE A DAY
     Route: 048
     Dates: start: 20201209

REACTIONS (8)
  - Blood pressure increased [Unknown]
  - Decreased appetite [Unknown]
  - Haematoma [Unknown]
  - Paraesthesia [Unknown]
  - Dizziness [Unknown]
  - Diarrhoea [Unknown]
  - Hypoaesthesia [Unknown]
  - Nausea [Unknown]

NARRATIVE: CASE EVENT DATE: 20201209
